FAERS Safety Report 9753634 (Version 1)
Quarter: 2013Q4

REPORT INFORMATION
  Report Type: Report from Study
  Country: NL (occurrence: NL)
  Receive Date: 20131213
  Receipt Date: 20131213
  Transmission Date: 20140711
  Serious: Yes (Hospitalization)
  Sender: FDA-Public Use
  Company Number: PHHY2013NL145826

PATIENT
  Age: 89 Year
  Sex: Female

DRUGS (3)
  1. ZOMETA [Suspect]
     Indication: BREAST CANCER METASTATIC
     Dosage: 4 MG/100ML (ONCE EVERY 04 WEEKS )
     Route: 042
  2. ZOMETA [Suspect]
     Dosage: 4 MG/100ML (ONCE EVERY 04 WEEKS )
     Route: 042
     Dates: start: 20130108
  3. ZOMETA [Suspect]
     Dosage: 4 MG/100ML (ONCE EVERY 04 WEEKS )
     Route: 042
     Dates: start: 20131112

REACTIONS (1)
  - Pneumonia [Recovering/Resolving]
